FAERS Safety Report 6425674-5 (Version None)
Quarter: 2009Q4

REPORT INFORMATION
  Report Type: 
  Country: None (occurrence: None)
  Receive Date: 20091029
  Receipt Date: 20091020
  Transmission Date: 20100525
  Serious: Yes (Other)
  Sender: FDA-Public Use
  Company Number: 234455K09USA

PATIENT
  Age: 56 Year
  Sex: Female

DRUGS (3)
  1. REBIF [Suspect]
     Indication: MULTIPLE SCLEROSIS
     Dosage: 44 MCG, 3 IN 1 WEEKS, SUBCUTANEOUS
     Route: 058
     Dates: start: 20080402
  2. AMLODIPINE [Concomitant]
  3. COZAAR [Concomitant]

REACTIONS (7)
  - DISEASE PROGRESSION [None]
  - EYE SWELLING [None]
  - MULTIPLE SCLEROSIS [None]
  - OCULAR HYPERAEMIA [None]
  - RETINAL HAEMORRHAGE [None]
  - RETINAL OEDEMA [None]
  - VISION BLURRED [None]
